FAERS Safety Report 9358385 (Version 1)
Quarter: 2013Q2

REPORT INFORMATION
  Report Type: Spontaneous
  Country: US (occurrence: US)
  Receive Date: 20130620
  Receipt Date: 20130620
  Transmission Date: 20140414
  Serious: No
  Sender: FDA-Public Use
  Company Number: US-PFIZER INC-2013184612

PATIENT
  Age: 47 Year
  Sex: Male
  Weight: 89.8 kg

DRUGS (2)
  1. ZOLOFT [Suspect]
     Indication: BRAIN NEOPLASM
     Dosage: 50 MG, 1X/DAY
     Dates: start: 2009
  2. KEPPRA [Concomitant]
     Indication: CONVULSION
     Dosage: 300 MG, 1X/DAY

REACTIONS (4)
  - Off label use [Unknown]
  - Renal disorder [Not Recovered/Not Resolved]
  - Protein urine present [Not Recovered/Not Resolved]
  - Urine analysis abnormal [Not Recovered/Not Resolved]
